FAERS Safety Report 15547121 (Version 2)
Quarter: 2018Q4

REPORT INFORMATION
  Report Type: Spontaneous
  Country: BG (occurrence: BG)
  Receive Date: 20181024
  Receipt Date: 20181029
  Transmission Date: 20190205
  Serious: Yes (Hospitalization)
  Sender: FDA-Public Use
  Company Number: PHHY2018BG129289

PATIENT
  Age: 65 Year
  Sex: Female

DRUGS (6)
  1. CEFTRIAXONE. [Concomitant]
     Active Substance: CEFTRIAXONE
     Indication: DISSEMINATED VARICELLA ZOSTER VACCINE VIRUS INFECTION
     Dosage: 2.0/24H
     Route: 065
  2. METHOTREXATE. [Suspect]
     Active Substance: METHOTREXATE
     Dosage: UNK
     Route: 048
     Dates: end: 201603
  3. METHOTREXATE. [Suspect]
     Active Substance: METHOTREXATE
     Indication: GOUT
     Dosage: UNK
     Route: 048
     Dates: start: 20160302
  4. FLUCONAZOLE. [Concomitant]
     Active Substance: FLUCONAZOLE
     Indication: DISSEMINATED VARICELLA ZOSTER VACCINE VIRUS INFECTION
     Dosage: 0.2/24H
     Route: 065
  5. ACICLOVIR [Concomitant]
     Active Substance: ACYCLOVIR
     Indication: DISSEMINATED VARICELLA ZOSTER VACCINE VIRUS INFECTION
     Dosage: 0.75 UNK, TID
     Route: 042
  6. AMLODIPINE [Concomitant]
     Active Substance: AMLODIPINE BESYLATE
     Indication: HYPERTENSION
     Dosage: UNK
     Route: 048

REACTIONS (6)
  - Oral pain [Recovered/Resolved]
  - Bowel movement irregularity [Recovered/Resolved]
  - Pyrexia [Recovered/Resolved]
  - Idiosyncratic drug reaction [Recovered/Resolved]
  - Rash pruritic [Recovered/Resolved]
  - Chest pain [Recovered/Resolved]

NARRATIVE: CASE EVENT DATE: 20160305
